FAERS Safety Report 9087197 (Version 1)
Quarter: 2013Q1

REPORT INFORMATION
  Report Type: Report from Study
  Country: CA (occurrence: CA)
  Receive Date: 20130201
  Receipt Date: 20130201
  Transmission Date: 20140127
  Serious: Yes (Other)
  Sender: FDA-Public Use
  Company Number: CA-ROCHE-1137422

PATIENT
  Age: 52 None
  Sex: Female
  Weight: 122.1 kg

DRUGS (4)
  1. ACTEMRA [Suspect]
     Indication: RHEUMATOID ARTHRITIS
     Route: 042
     Dates: start: 20120223
  2. LYRICA [Concomitant]
     Route: 065
  3. OLMETEC [Concomitant]
  4. CYMBALTA [Concomitant]

REACTIONS (4)
  - Blood pressure abnormal [Unknown]
  - Heart rate increased [Not Recovered/Not Resolved]
  - Weight increased [Not Recovered/Not Resolved]
  - Tendon rupture [Not Recovered/Not Resolved]
